FAERS Safety Report 15599731 (Version 4)
Quarter: 2019Q2

REPORT INFORMATION
  Report Type: Report from Study
  Country: US (occurrence: US)
  Receive Date: 20181108
  Receipt Date: 20190605
  Transmission Date: 20190711
  Serious: Yes (Hospitalization)
  Sender: FDA-Public Use
  Company Number: US-ACTELION-A-US2018-166700

PATIENT
  Sex: Female
  Weight: 74.83 kg

DRUGS (4)
  1. WARFARIN [Concomitant]
     Active Substance: WARFARIN
  2. ELIQUIS [Concomitant]
     Active Substance: APIXABAN
  3. OPSUMIT [Suspect]
     Active Substance: MACITENTAN
     Indication: PULMONARY ARTERIAL HYPERTENSION
     Dosage: 10 MG, QD
     Route: 048
  4. REVATIO [Concomitant]
     Active Substance: SILDENAFIL CITRATE

REACTIONS (21)
  - Fall [Unknown]
  - Unevaluable event [Unknown]
  - Medical observation [Unknown]
  - Dizziness [Unknown]
  - Dyspnoea exertional [Unknown]
  - Malaise [Unknown]
  - Seizure [Unknown]
  - Asthenia [Unknown]
  - Headache [Unknown]
  - Head injury [Unknown]
  - Thrombosis [Unknown]
  - Pulmonary embolism [Unknown]
  - Implantable defibrillator insertion [Unknown]
  - Investigation [Unknown]
  - Dyspnoea [Unknown]
  - Chest pain [Unknown]
  - Syncope [Unknown]
  - Vomiting [Unknown]
  - Nasopharyngitis [Unknown]
  - Fatigue [Unknown]
  - Cardiac arrest [Unknown]
